FAERS Safety Report 4462486-6 (Version None)
Quarter: 2004Q3

REPORT INFORMATION
  Report Type: 
  Country: None (occurrence: None)
  Receive Date: 20040924
  Receipt Date: 20040914
  Transmission Date: 20050211
  Serious: Yes (Hospitalization)
  Sender: FDA-Public Use
  Company Number: HQWYE622026AUG04

PATIENT
  Age: 51 Year
  Sex: Female
  Weight: 79.9 kg

DRUGS (5)
  1. RAPAMUNE [Suspect]
     Indication: PROPHYLAXIS AGAINST TRANSPLANT REJECTION
     Dosage: 4 MG 1X PER 1 DAY
     Dates: start: 20040513, end: 20040719
  2. CYCLOSPORINE [Suspect]
     Indication: IMMUNOSUPPRESSANT DRUG THERAPY
     Dosage: 250 MG 2X PER 1 DAY, ORAL
     Route: 048
  3. PREDNISONE [Suspect]
     Dosage: 10 MG 1X PER 1 DAY, ORAL
     Route: 048
  4. NPH INSULIN [Concomitant]
  5. METOPROLOL TARTRATE [Concomitant]

REACTIONS (5)
  - ABDOMINAL TENDERNESS [None]
  - HYPERGLYCAEMIA [None]
  - IMPAIRED HEALING [None]
  - WOUND COMPLICATION [None]
  - WOUND SECRETION [None]
